FAERS Safety Report 25641626 (Version 1)
Quarter: 2025Q3

REPORT INFORMATION
  Report Type: Spontaneous
  Country: GB (occurrence: GB)
  Receive Date: 20250804
  Receipt Date: 20250804
  Transmission Date: 20251021
  Serious: Yes (Life-Threatening)
  Sender: GE HEALTHCARE
  Company Number: GB-MHRA-TPP29884480C11775007YC1753692529884

PATIENT
  Age: 40 Year
  Sex: Female
  Weight: 61 kg

DRUGS (2)
  1. GADOBUTROL [Suspect]
     Active Substance: GADOBUTROL
     Indication: Diagnostic procedure
     Route: 065
     Dates: start: 20250727
  2. Lizinna [Concomitant]
     Dates: start: 20240605

REACTIONS (2)
  - Swelling [Unknown]
  - Rash macular [Recovered/Resolved]
